FAERS Safety Report 7571019-7 (Version None)
Quarter: 2011Q2

REPORT INFORMATION
  Report Type: 
  Country: None (occurrence: None)
  Receive Date: 20110624
  Receipt Date: 20110610
  Transmission Date: 20111010
  Serious: Yes (Other)
  Sender: FDA-Public Use
  Company Number: IT-WATSON-2011-09145

PATIENT
  Age: 43 Year
  Sex: Female

DRUGS (4)
  1. ALBUTEROL [Suspect]
     Indication: ASTHMA
     Dosage: 100 UG, BID
     Route: 055
  2. SALMETEROL [Suspect]
     Indication: ASTHMA
     Dosage: 100 UG, DAILY
     Route: 055
  3. ALBUTEROL [Suspect]
     Indication: COUGH
  4. SALMETEROL [Suspect]
     Indication: COUGH

REACTIONS (1)
  - CYSTITIS HAEMORRHAGIC [None]
